FAERS Safety Report 10017950 (Version 2)
Quarter: 2014Q1

REPORT INFORMATION
  Report Type: Spontaneous
  Country: US (occurrence: US)
  Receive Date: 20140318
  Receipt Date: 20140331
  Transmission Date: 20141002
  Serious: No
  Sender: FDA-Public Use
  Company Number: US-PFIZER INC-2014075528

PATIENT
  Sex: Female

DRUGS (3)
  1. ATORVASTATIN CALCIUM [Suspect]
     Dosage: UNK
  2. GABAPENTIN [Concomitant]
     Dosage: 600 MG STRENGTH, UNK
  3. PROZAC [Concomitant]
     Dosage: 40 MG STRENGTH, UNK

REACTIONS (3)
  - Pain [Unknown]
  - Nausea [Unknown]
  - Fibromyalgia [Unknown]
